FAERS Safety Report 8168453-3 (Version None)
Quarter: 2012Q1

REPORT INFORMATION
  Report Type: 
  Country: None (occurrence: None)
  Receive Date: 20120222
  Receipt Date: 20120213
  Transmission Date: 20120608
  Serious: Yes (Other)
  Sender: FDA-Public Use
  Company Number: 2012SP008913

PATIENT
  Age: 29 Year
  Sex: Female

DRUGS (1)
  1. NEXPLANON [Suspect]
     Indication: PRODUCT USED FOR UNKNOWN INDICATION
     Dosage: 1 DF;
     Dates: start: 20120203

REACTIONS (5)
  - PROCEDURAL PAIN [None]
  - HAEMATOMA [None]
  - DEVICE DIFFICULT TO USE [None]
  - PARAESTHESIA [None]
  - PARALYSIS [None]
